FAERS Safety Report 7542017-4 (Version None)
Quarter: 2011Q2

REPORT INFORMATION
  Report Type: 
  Country: None (occurrence: None)
  Receive Date: 20110613
  Receipt Date: 20110606
  Transmission Date: 20111010
  Serious: Yes (Hospitalization)
  Sender: FDA-Public Use
  Company Number: JP-ASTRAZENECA-2011SE24315

PATIENT
  Age: 61 Year
  Sex: Male
  Weight: 55 kg

DRUGS (1)
  1. IRESSA [Suspect]
     Indication: LUNG ADENOCARCINOMA
     Route: 048
     Dates: start: 20101217, end: 20110415

REACTIONS (1)
  - HEPATIC FUNCTION ABNORMAL [None]
